FAERS Safety Report 11283225 (Version 1)
Quarter: 2015Q3

REPORT INFORMATION
  Report Type: Spontaneous
  Country: US (occurrence: None)
  Receive Date: 20150717
  Receipt Date: 20150717
  Transmission Date: 20151125
  Serious: Yes (Other)
  Sender: FDA-Public Use
  Company Number: None

PATIENT
  Sex: Female
  Weight: 54.43 kg

DRUGS (8)
  1. VITAMIN E [Concomitant]
     Active Substance: .ALPHA.-TOCOPHEROL
  2. VITAMIN C [Concomitant]
     Active Substance: ASCORBIC ACID
  3. TYLENOL COLD MULTI-SYMPTOM [Suspect]
     Active Substance: ACETAMINOPHEN\DEXTROMETHORPHAN HYDROBROMIDE\DOXYLAMINE SUCCINATE\PHENYLEPHRINE
     Indication: UPPER RESPIRATORY TRACT INFECTION
     Dosage: 1 CAPLET, TWICE DAILY, --?
     Dates: start: 20150709, end: 20150710
  4. TYLENOL COLD MULTI-SYMPTOM [Suspect]
     Active Substance: ACETAMINOPHEN\DEXTROMETHORPHAN HYDROBROMIDE\DOXYLAMINE SUCCINATE\PHENYLEPHRINE
     Indication: COUGH
     Dosage: 1 CAPLET, TWICE DAILY, --?
     Dates: start: 20150709, end: 20150710
  5. TYLENOL COLD MULTI-SYMPTOM [Suspect]
     Active Substance: ACETAMINOPHEN\DEXTROMETHORPHAN HYDROBROMIDE\DOXYLAMINE SUCCINATE\PHENYLEPHRINE
     Indication: OROPHARYNGEAL PAIN
     Dosage: 1 CAPLET, TWICE DAILY, --?
     Dates: start: 20150709, end: 20150710
  6. MUTLI-VITAMIN [Concomitant]
  7. VITAMIN D [Concomitant]
     Active Substance: CHOLECALCIFEROL
  8. CALCIUM [Concomitant]
     Active Substance: CALCIUM

REACTIONS (4)
  - Eye swelling [None]
  - Urticaria [None]
  - Swelling face [None]
  - Pruritus [None]

NARRATIVE: CASE EVENT DATE: 20150709
